FAERS Safety Report 10232523 (Version 1)
Quarter: 2014Q2

REPORT INFORMATION
  Report Type: Spontaneous
  Country: US (occurrence: None)
  Receive Date: 20140610
  Receipt Date: 20140610
  Transmission Date: 20141212
  Serious: Yes (Hospitalization)
  Sender: FDA-Public Use
  Company Number: 2014RT000066

PATIENT
  Age: 8 Year
  Sex: Female
  Weight: 20.9 kg

DRUGS (11)
  1. PROCYSBI (CYSTEAMINE BITARTRATE) CAPSULE, DELAYED RELEASE [Suspect]
     Indication: CYSTINOSIS
  2. INDOMETHACIN [Concomitant]
  3. PERIACTIN (CYPROHEPTADINE HYDROCHLORIDE) [Concomitant]
  4. ENALAPRIL (ENALAPRIL) [Concomitant]
  5. POTASSIUM (POTASSIUM) [Concomitant]
  6. PHOSPHORUS (PHOSPHORUS) [Concomitant]
  7. CARNITOR (LEVOCARNITINE) [Concomitant]
  8. CHOROPHYLL (CHLOROPHYLL) [Concomitant]
  9. VITAMIN B2 (RIBOFLAVIN) [Concomitant]
  10. NORDYTROPIN (SOMATROPIN) [Concomitant]
  11. CYSTARAN EYE DROPS (MERCAPTAMINE) [Concomitant]

REACTIONS (5)
  - Gastrointestinal viral infection [None]
  - Blood electrolytes decreased [None]
  - Diarrhoea [None]
  - Vomiting [None]
  - Dehydration [None]
